FAERS Safety Report 7346807-2 (Version None)
Quarter: 2011Q1

REPORT INFORMATION
  Report Type: 
  Country: None (occurrence: None)
  Receive Date: 20110302
  Receipt Date: 20110223
  Transmission Date: 20110831
  Serious: Yes (Death, Hospitalization, Other)
  Sender: FDA-Public Use
  Company Number: 2011GB0046

PATIENT
  Age: 74 Year
  Sex: Female

DRUGS (2)
  1. ANAKINRA (ANAKINRA) [Suspect]
     Indication: RHEUMATOID ARTHRITIS
     Dosage: 100 MG (1OO MG, 1 IN 1 )
     Dates: start: 20011202, end: 20031115
  2. METHOTREXATE [Concomitant]

REACTIONS (1)
  - SKIN CANCER [None]
